FAERS Safety Report 22159264 (Version 1)
Quarter: 2023Q1

REPORT INFORMATION
  Report Type: Report from Study
  Country: US (occurrence: None)
  Receive Date: 20230331
  Receipt Date: 20230331
  Transmission Date: 20230418
  Serious: Yes (Death, Hospitalization)
  Sender: FDA-Public Use
  Company Number: US-ROCHE-3314067

PATIENT
  Age: 78 Year
  Sex: Male
  Weight: 106.5 kg

DRUGS (2)
  1. ATEZOLIZUMAB [Suspect]
     Active Substance: ATEZOLIZUMAB
     Indication: Hormone-refractory prostate cancer
     Route: 041
     Dates: start: 20230131, end: 20230314
  2. ABEMACICLIB [Suspect]
     Active Substance: ABEMACICLIB
     Indication: Hormone-refractory prostate cancer
     Route: 048
     Dates: start: 20230131, end: 20230314

REACTIONS (10)
  - Urinary tract infection [Fatal]
  - Atrial fibrillation [Fatal]
  - Sepsis [Unknown]
  - Tachycardia [Unknown]
  - Tachypnoea [Unknown]
  - Dysphagia [Unknown]
  - Thrombocytopenia [Unknown]
  - Pulmonary congestion [Unknown]
  - Rhinorrhoea [Unknown]
  - Acute kidney injury [Unknown]

NARRATIVE: CASE EVENT DATE: 20230316
